FAERS Safety Report 12053029 (Version 2)
Quarter: 2016Q1

REPORT INFORMATION
  Report Type: Spontaneous
  Country: US (occurrence: US)
  Receive Date: 20160209
  Receipt Date: 20160317
  Transmission Date: 20160526
  Serious: Yes (Hospitalization, Other)
  Sender: FDA-Public Use
  Company Number: US-BRISTOL-MYERS SQUIBB COMPANY-BMS-2016-005641

PATIENT
  Age: 43 Year
  Sex: Male

DRUGS (1)
  1. NULOJIX [Suspect]
     Active Substance: BELATACEPT
     Indication: RENAL TRANSPLANT
     Dosage: 450 MG, Q2WK
     Route: 042
     Dates: start: 20151210

REACTIONS (1)
  - Sensory loss [Recovered/Resolved]

NARRATIVE: CASE EVENT DATE: 20160121
